FAERS Safety Report 7496234-2 (Version None)
Quarter: 2011Q2

REPORT INFORMATION
  Report Type: 
  Country: None (occurrence: None)
  Receive Date: 20110523
  Receipt Date: 20110512
  Transmission Date: 20111010
  Serious: Yes (Hospitalization, Other)
  Sender: FDA-Public Use
  Company Number: PHHY2011BR40969

PATIENT
  Sex: Female

DRUGS (1)
  1. EXFORGE [Suspect]
     Indication: HYPERTENSION
     Dosage: 160 MG VALS AND 5 MG AMLO (! TABLET DAILY)
     Route: 048

REACTIONS (8)
  - OVARIAN CYST [None]
  - ANXIETY [None]
  - FORMICATION [None]
  - PNEUMONIA [None]
  - CEREBROVASCULAR ACCIDENT [None]
  - PAIN [None]
  - TUBERCULOSIS [None]
  - TONGUE BITING [None]
